FAERS Safety Report 4661381-7 (Version None)
Quarter: 2005Q2

REPORT INFORMATION
  Report Type: 
  Country: None (occurrence: None)
  Receive Date: 20050512
  Receipt Date: 20041216
  Transmission Date: 20051028
  Serious: Yes (Death)
  Sender: FDA-Public Use
  Company Number: 05-05-0785

PATIENT
  Age: 21 Year
  Sex: Female

DRUGS (5)
  1. MIRTAZAPINE [Suspect]
  2. DEXTROPROPOXYPHENE [Suspect]
  3. PARACETAMOL [Suspect]
  4. VENLAFAXINE HCL [Suspect]
  5. ZOLPIDEM [Suspect]

REACTIONS (1)
  - SUDDEN DEATH [None]
